FAERS Safety Report 5918061-7 (Version None)
Quarter: 2008Q4

REPORT INFORMATION
  Report Type: 
  Country: None (occurrence: None)
  Receive Date: 20081014
  Receipt Date: 20081007
  Transmission Date: 20090506
  Serious: Yes (Other)
  Sender: FDA-Public Use
  Company Number: US-ASTRAZENECA-2008UW21892

PATIENT
  Age: 70 Year
  Sex: Male
  Weight: 134.3 kg

DRUGS (7)
  1. ZOLADEX [Suspect]
     Indication: PROSTATE CANCER
     Route: 058
     Dates: start: 20080301
  2. CASODEX [Concomitant]
     Route: 048
  3. ATENOLOL [Concomitant]
  4. DOCUSATE [Concomitant]
  5. LISINOPRIL [Concomitant]
  6. METOCLOPROMIDE [Concomitant]
  7. TERAZOSIN HCL [Concomitant]

REACTIONS (5)
  - ABDOMINAL PAIN [None]
  - ASCITES [None]
  - BLOOD BILIRUBIN INCREASED [None]
  - HEPATOMEGALY [None]
  - LIVER FUNCTION TEST ABNORMAL [None]
